FAERS Safety Report 19367312 (Version 1)
Quarter: 2021Q2

REPORT INFORMATION
  Report Type: Spontaneous
  Country: US (occurrence: US)
  Receive Date: 20210602
  Receipt Date: 20210602
  Transmission Date: 20210717
  Serious: No
  Sender: FDA-Public Use
  Company Number: US-ROCHE-2732738

PATIENT
  Sex: Male
  Weight: 21.61 kg

DRUGS (6)
  1. ZYRTEC (UNITED STATES) [Concomitant]
     Route: 003
  2. EVRYSDI [Suspect]
     Active Substance: RISDIPLAM
     Indication: SPINAL MUSCULAR ATROPHY
     Dosage: 60 MG/80 ML ORAL SOLUTION
     Route: 048
  3. LEVALBUTEROL. [Concomitant]
     Active Substance: LEVALBUTEROL
  4. SPINRAZA [Concomitant]
     Active Substance: NUSINERSEN
  5. PULMICORT TURBUHALER [Concomitant]
     Active Substance: BUDESONIDE
     Dosage: 0.25MG/2M MPUL?NEB
  6. CLARITIN?D 12 HOUR [Concomitant]
     Active Substance: LORATADINE\PSEUDOEPHEDRINE SULFATE

REACTIONS (1)
  - Stoma site infection [Unknown]
